FAERS Safety Report 4507177-8 (Version None)
Quarter: 2004Q4

REPORT INFORMATION
  Report Type: 
  Country: None (occurrence: None)
  Receive Date: 20041025
  Receipt Date: 20040618
  Transmission Date: 20050328
  Serious: Yes (Other)
  Sender: FDA-Public Use
  Company Number: US-JNJFOC-20040504545

PATIENT
  Age: 58 Year
  Sex: Female
  Weight: 90.7194 kg

DRUGS (1)
  1. REMICADE [Suspect]
     Indication: PSORIASIS
     Dosage: INTRAVENOUS
     Route: 042
     Dates: start: 20031225

REACTIONS (3)
  - CHEST WALL PAIN [None]
  - CONVULSION [None]
  - VOMITING [None]
